FAERS Safety Report 19985269 (Version 1)
Quarter: 2021Q4

REPORT INFORMATION
  Report Type: Spontaneous
  Country: US (occurrence: US)
  Receive Date: 20211022
  Receipt Date: 20211022
  Transmission Date: 20220303
  Serious: Yes (Hospitalization)
  Sender: FDA-Public Use
  Company Number: None

PATIENT
  Age: 47 Year
  Sex: Female
  Weight: 79 kg

DRUGS (6)
  1. REGEN-COV [Suspect]
     Active Substance: CASIRIVIMAB\IMDEVIMAB
     Indication: COVID-19
     Dosage: ?          OTHER FREQUENCY:ONCE;
     Route: 041
     Dates: start: 20210908, end: 20210908
  2. Albuterol duo neb [Concomitant]
     Dates: start: 20210908, end: 20210919
  3. AZITHROMYCIN ANHYDROUS [Concomitant]
     Active Substance: AZITHROMYCIN ANHYDROUS
     Dates: start: 20210908, end: 20210918
  4. LOVENOX [Concomitant]
     Active Substance: ENOXAPARIN SODIUM
     Dates: start: 20210908, end: 20210919
  5. PEPCID [Concomitant]
     Active Substance: FAMOTIDINE
     Dates: start: 20210908, end: 20210919
  6. PULMICORT RESPULES [Concomitant]
     Active Substance: BUDESONIDE
     Dates: start: 20210908, end: 20210919

REACTIONS (1)
  - Hypoxia [None]

NARRATIVE: CASE EVENT DATE: 20210908
